FAERS Safety Report 9844304 (Version 3)
Quarter: 2014Q1

REPORT INFORMATION
  Report Type: Spontaneous
  Country: IT (occurrence: None)
  Receive Date: 20140123
  Receipt Date: 20140325
  Transmission Date: 20141002
  Serious: Yes (Hospitalization)
  Sender: FDA-Public Use
  Company Number: AUR-APL-2014-00457

PATIENT
  Age: 77 Year
  Sex: Female

DRUGS (3)
  1. LEVOFLOXACIN [Suspect]
     Indication: BRONCHOPNEUMONIA
     Route: 048
     Dates: start: 20131213, end: 20131226
  2. CLARITHROMYCIN [Suspect]
     Indication: BRONCHOPNEUMONIA
     Dates: start: 20131223, end: 20131226
  3. COUMADIN [Suspect]
     Indication: ATRIAL FIBRILLATION
     Dates: start: 20100725, end: 20131226

REACTIONS (3)
  - Drug interaction [None]
  - International normalised ratio increased [None]
  - Hypocoagulable state [None]
